FAERS Safety Report 25186179 (Version 1)
Quarter: 2025Q2

REPORT INFORMATION
  Report Type: Spontaneous
  Country: US (occurrence: US)
  Receive Date: 20250410
  Receipt Date: 20250410
  Transmission Date: 20250716
  Serious: No
  Sender: BEIGENE
  Company Number: US-BEIGENE-BGN-2025-005277

PATIENT
  Age: 72 Year

DRUGS (1)
  1. BRUKINSA [Suspect]
     Active Substance: ZANUBRUTINIB
     Indication: Mantle cell lymphoma
     Dosage: 160 MILLIGRAM, BID

REACTIONS (1)
  - Haemoptysis [Not Recovered/Not Resolved]
